FAERS Safety Report 4614208-3 (Version None)
Quarter: 2005Q1

REPORT INFORMATION
  Report Type: 
  Country: None (occurrence: None)
  Receive Date: 20050316
  Receipt Date: 20050310
  Transmission Date: 20050727
  Serious: Yes (Hospitalization)
  Sender: FDA-Public Use
  Company Number: 2005PK00415

PATIENT
  Age: 85 Year
  Sex: Female

DRUGS (19)
  1. BELOC ZOK [Suspect]
     Indication: MYOCARDIAL ISCHAEMIA
     Dosage: 100 MG DAILY PO
     Route: 048
  2. MS CONTIN [Suspect]
     Indication: PAIN
     Dosage: 10 MG BID PO
     Route: 048
     Dates: start: 20050109, end: 20050110
  3. VALORON [Suspect]
     Indication: PAIN
     Dosage: 75 MG QID PO
     Route: 048
     Dates: start: 20050108, end: 20050110
  4. SURMONTIL [Suspect]
     Dosage: 25 MG QD PO
     Route: 048
     Dates: start: 20050109, end: 20050110
  5. NEURONTIN [Suspect]
     Indication: PAIN
     Dosage: 600 MG TID PO
     Route: 048
     Dates: start: 20050108, end: 20050110
  6. NEURONTIN [Suspect]
     Indication: PAIN
     Dosage: 600 MG PO
     Route: 048
  7. AGOPTON [Suspect]
     Dosage: 30 MG QD PO
     Route: 048
  8. MARCOUMAR [Concomitant]
  9. TRIATEC [Concomitant]
  10. NORVASC [Concomitant]
  11. PRAVASTATIN SODIUM [Concomitant]
  12. CORVATON [Concomitant]
  13. PARACETAMOL [Concomitant]
  14. CALCIUM GLUCONATE [Concomitant]
  15. FOSAMAX [Concomitant]
  16. NITRODERM [Concomitant]
  17. TOREM [Concomitant]
  18. HEPARIN [Concomitant]
  19. PREDNISON [Concomitant]

REACTIONS (3)
  - DRUG INTERACTION [None]
  - OVERDOSE [None]
  - STUPOR [None]
